FAERS Safety Report 10676111 (Version 1)
Quarter: 2014Q4

REPORT INFORMATION
  Report Type: Report from Study
  Country: DK (occurrence: DK)
  Receive Date: 20141226
  Receipt Date: 20141226
  Transmission Date: 20150529
  Serious: Yes (Hospitalization)
  Sender: FDA-Public Use
  Company Number: DK-ROCHE-1510770

PATIENT
  Age: 49 Year
  Sex: Female

DRUGS (3)
  1. LOSARTAN [Concomitant]
     Active Substance: LOSARTAN
     Dosage: IS TAKEN IN PERIODS OF 14 DAYS
     Route: 065
  2. ALDESLEUKIN [Suspect]
     Active Substance: ALDESLEUKIN
     Indication: RENAL CANCER
     Dosage: 5 DAYS A WEEK, LAST DOSE PRIOR TO SAE 05/JUN/2012
     Route: 058
     Dates: start: 20120206, end: 20120605
  3. BEVACIZUMAB [Suspect]
     Active Substance: BEVACIZUMAB
     Indication: RENAL CANCER
     Dosage: LAST DOSE PRIOR TO SAE 29/MAY/2012
     Route: 042
     Dates: start: 20120206, end: 20120529

REACTIONS (2)
  - Myocarditis [Recovered/Resolved]
  - Atrial fibrillation [Recovered/Resolved]

NARRATIVE: CASE EVENT DATE: 20120605
